FAERS Safety Report 5418584-3 (Version None)
Quarter: 2007Q3

REPORT INFORMATION
  Report Type: 
  Country: None (occurrence: None)
  Receive Date: 20070817
  Receipt Date: 20070805
  Transmission Date: 20080115
  Serious: Yes (Other)
  Sender: FDA-Public Use
  Company Number: US-PFIZER INC-2007065734

PATIENT
  Sex: Female
  Weight: 83.9 kg

DRUGS (3)
  1. LYRICA [Suspect]
     Indication: FIBROMYALGIA
     Dates: start: 20070803, end: 20070803
  2. CARDIAC THERAPY [Concomitant]
  3. ALL OTHER THERAPEUTIC PRODUCTS [Concomitant]

REACTIONS (5)
  - CEREBROVASCULAR ACCIDENT [None]
  - DISTURBANCE IN ATTENTION [None]
  - DIZZINESS [None]
  - GAIT DISTURBANCE [None]
  - SPEECH DISORDER [None]
